FAERS Safety Report 6431537-1 (Version None)
Quarter: 2009Q4

REPORT INFORMATION
  Report Type: 
  Country: None (occurrence: None)
  Receive Date: 20091103
  Receipt Date: 20091019
  Transmission Date: 20100525
  Serious: Yes (Hospitalization)
  Sender: FDA-Public Use
  Company Number: 02100-JPN-06-0460

PATIENT
  Age: 70 Year
  Sex: Male
  Weight: 55 kg

DRUGS (20)
  1. PLETAL [Suspect]
     Indication: CEREBRAL INFARCTION
     Dosage: 100 MG, BID; ORAL, 100 MG, BID; ORAL, 100 MG, BID; ORAL
     Route: 048
     Dates: start: 20040702, end: 20040702
  2. PLETAL [Suspect]
     Indication: CEREBRAL INFARCTION
     Dosage: 100 MG, BID; ORAL, 100 MG, BID; ORAL, 100 MG, BID; ORAL
     Route: 048
     Dates: start: 20040707, end: 20060911
  3. PLETAL [Suspect]
     Indication: CEREBRAL INFARCTION
     Dosage: 100 MG, BID; ORAL, 100 MG, BID; ORAL, 100 MG, BID; ORAL
     Route: 048
     Dates: start: 20061004, end: 20081002
  4. BLOPRESS (CANDESARTAN CILEXETIL) TABLET [Concomitant]
  5. INDIGOCARMINE (INDIGOCARMINE) INJECTION [Concomitant]
  6. JUSO-JO (SODIUM BICARBONATE) [Concomitant]
  7. PRONASE (PRONASE) CAPSULE [Concomitant]
  8. BUSCOPAN (BUTYLSCOPOLAMINE BROMIDE) INJECTION [Concomitant]
  9. XYLOCAINE (LIDOCAINE HYDROCHLORIDE) GEL [Concomitant]
  10. XYLOCAINE [Concomitant]
  11. DASEN (SERRAPEPTASE) [Concomitant]
  12. PL (NON-PYRINE PREPARATION FOR COLD SYMPTOM 4) [Concomitant]
  13. SEKICODE (DIHYDROCODEINE-EPHEDRIN COMBINED DRUG) SYRUP [Concomitant]
  14. INTAL (CROMOGLICATE SODIUM) EYE DROPS [Concomitant]
  15. LIPOVAS (SIMVASTATIN) TABLET [Concomitant]
  16. TARIVID (OFLOXACIN) EYE DROPS [Concomitant]
  17. GASTER D (FAMOTIDINE) TABLET [Concomitant]
  18. SUCRALFATE [Concomitant]
  19. PARIET (SODIUM RABEPRAZOLE) TABLET [Concomitant]
  20. RIZABEN (TRANILAST) EYE DROPS [Concomitant]

REACTIONS (6)
  - CEREBRAL INFARCTION [None]
  - CONDITION AGGRAVATED [None]
  - DRUG INEFFECTIVE [None]
  - EAR DISORDER [None]
  - MASS [None]
  - NEOPLASM SKIN [None]
